FAERS Safety Report 4424995-5 (Version None)
Quarter: 2004Q3

REPORT INFORMATION
  Report Type: 
  Country: None (occurrence: None)
  Receive Date: 20040811
  Receipt Date: 20040811
  Transmission Date: 20050211
  Serious: Yes (Other)
  Sender: FDA-Public Use
  Company Number: None

PATIENT
  Age: 42 Year
  Sex: Male
  Weight: 98.8842 kg

DRUGS (1)
  1. CORTISPORIN [Suspect]
     Indication: EAR INFECTION
     Dosage: 3GTTS TO AF LA (S) QID F7D
     Dates: start: 20040805

REACTIONS (4)
  - AURICULAR SWELLING [None]
  - CONDITION AGGRAVATED [None]
  - EAR PAIN [None]
  - ERYTHEMA [None]
